FAERS Safety Report 23712237 (Version 1)
Quarter: 2024Q2

REPORT INFORMATION
  Report Type: Spontaneous
  Country: US (occurrence: None)
  Receive Date: 20240404
  Receipt Date: 20240404
  Transmission Date: 20240716
  Serious: No
  Sender: FDA-Public Use
  Company Number: None

PATIENT
  Age: 61 Year
  Sex: Female

DRUGS (1)
  1. HAND SANITIZER NOS [Suspect]
     Active Substance: ALCOHOL\AVOBENZONE\HOMOSALATE\OCTISALATE\OCTOCRYLENE\OXYBENZONE OR ALCOHOL\HOMOSALATE\OCTINOXATE\OCT
     Dosage: OTHER QUANTITY : 1 DROP(S)?FREQUENCY : AS NEEDED?
     Route: 061
     Dates: start: 20240326, end: 20240404

REACTIONS (2)
  - Diarrhoea [None]
  - Vomiting [None]

NARRATIVE: CASE EVENT DATE: 20240403
